FAERS Safety Report 9298566 (Version 1)
Quarter: 2013Q2

REPORT INFORMATION
  Report Type: Spontaneous
  Country: DE (occurrence: DE)
  Receive Date: 20130520
  Receipt Date: 20130520
  Transmission Date: 20140414
  Serious: Yes (Life-Threatening)
  Sender: FDA-Public Use
  Company Number: DE-ASTRAZENECA-2013SE34569

PATIENT
  Age: 51 Year
  Sex: Female
  Weight: 50 kg

DRUGS (2)
  1. QUETIAPINE [Suspect]
     Dosage: 15000 MG ONCE/SINGLE ADMINISTRATION 50 TABLETS IN ONE DAY
     Route: 048
     Dates: start: 20130213, end: 20130213
  2. TAZOBAC [Concomitant]

REACTIONS (4)
  - Intentional overdose [Unknown]
  - Suicide attempt [Unknown]
  - Pneumonia [Unknown]
  - Leukopenia [Unknown]
